FAERS Safety Report 11011579 (Version 2)
Quarter: 2015Q2

REPORT INFORMATION
  Report Type: Spontaneous
  Country: US (occurrence: US)
  Receive Date: 20150410
  Receipt Date: 20150525
  Transmission Date: 20150821
  Serious: No
  Sender: FDA-Public Use
  Company Number: US-JNJFOC-20120800573

PATIENT
  Age: 50 Year
  Sex: Female
  Weight: 88.45 kg

DRUGS (10)
  1. REMICADE [Suspect]
     Active Substance: INFLIXIMAB
     Indication: CROHN^S DISEASE
     Route: 042
     Dates: start: 20110809
  2. VITAMIN D [Concomitant]
     Active Substance: CHOLECALCIFEROL
     Dosage: REPORTED AS 200 UNITS TABLET
     Route: 065
  3. CALCIUM [Concomitant]
     Active Substance: CALCIUM
     Route: 065
  4. REMICADE [Suspect]
     Active Substance: INFLIXIMAB
     Indication: COLITIS ULCERATIVE
     Route: 042
     Dates: start: 20120510
  5. REMICADE [Suspect]
     Active Substance: INFLIXIMAB
     Indication: CROHN^S DISEASE
     Route: 042
     Dates: start: 20120713
  6. REMICADE [Suspect]
     Active Substance: INFLIXIMAB
     Indication: CROHN^S DISEASE
     Route: 042
     Dates: start: 20120510
  7. CANASA [Concomitant]
     Active Substance: MESALAMINE
     Route: 054
  8. REMICADE [Suspect]
     Active Substance: INFLIXIMAB
     Indication: COLITIS ULCERATIVE
     Route: 042
     Dates: start: 20120713
  9. REMICADE [Suspect]
     Active Substance: INFLIXIMAB
     Indication: COLITIS ULCERATIVE
     Route: 042
     Dates: start: 20110809
  10. MUTIVITAMINS [Concomitant]
     Route: 065

REACTIONS (10)
  - Burning sensation [Unknown]
  - Diarrhoea [Unknown]
  - Anxiety [Unknown]
  - Paraesthesia [Recovering/Resolving]
  - Haematochezia [Unknown]
  - Hypoaesthesia [Recovered/Resolved]
  - Syncope [Recovered/Resolved]
  - Carpal tunnel syndrome [Recovering/Resolving]
  - Pain in extremity [Recovered/Resolved]
  - Myalgia [Unknown]

NARRATIVE: CASE EVENT DATE: 201205
